FAERS Safety Report 4283275-1 (Version None)
Quarter: 2004Q1

REPORT INFORMATION
  Report Type: 
  Country: None (occurrence: None)
  Receive Date: 20040129
  Receipt Date: 20040113
  Transmission Date: 20041129
  Serious: No
  Sender: FDA-Public Use
  Company Number: 2004AP00295

PATIENT
  Age: 19 Year
  Sex: Female

DRUGS (4)
  1. ANAPEINE [Suspect]
     Indication: EPIDURAL ANAESTHESIA
     Dosage: 4 ML /HR ED
     Route: 008
     Dates: start: 20040105, end: 20040108
  2. ANAPEINE [Suspect]
     Indication: EPIDURAL ANAESTHESIA
     Dosage: 3 ML ED
     Route: 008
     Dates: start: 20040105, end: 20040108
  3. CARBOCAIN [Suspect]
     Indication: EPIDURAL ANAESTHESIA
     Dosage: 160 MG DAILY ED
     Route: 008
     Dates: start: 20040105, end: 20040105
  4. MARCAINE [Suspect]
     Indication: SPINAL ANAESTHESIA
     Dosage: 10 MG DAILY
     Dates: start: 20040105, end: 20040105

REACTIONS (3)
  - COMPLICATIONS OF MATERNAL EXPOSURE TO THERAPEUTIC DRUGS [None]
  - NERVOUS SYSTEM DISORDER [None]
  - NEUROPATHY PERIPHERAL [None]
